FAERS Safety Report 25399236 (Version 1)
Quarter: 2025Q2

REPORT INFORMATION
  Report Type: Spontaneous
  Country: CN (occurrence: CN)
  Receive Date: 20250605
  Receipt Date: 20250605
  Transmission Date: 20250717
  Serious: Yes (Hospitalization, Other)
  Sender: BAXTER
  Company Number: None

PATIENT
  Age: 57 Year
  Sex: Female
  Weight: 55 kg

DRUGS (4)
  1. CYCLOPHOSPHAMIDE [Suspect]
     Active Substance: CYCLOPHOSPHAMIDE
     Indication: Breast cancer female
     Dosage: 950.0000 MG, QD, INJECTION, FIRST CYCLE OF CHEMOTHERAPY
     Route: 041
     Dates: start: 20250425, end: 20250425
  2. DEXTROSE MONOHYDRATE [Suspect]
     Active Substance: DEXTROSE MONOHYDRATE
     Indication: Medication dilution
     Dosage: 250.0000 ML, QD, INJECTION, FIRST CYCLE OF CHEMOTHERAPY
     Route: 041
     Dates: start: 20250425, end: 20250425
  3. DOXORUBICIN HYDROCHLORIDE [Suspect]
     Active Substance: DOXORUBICIN HYDROCHLORIDE
     Indication: Breast cancer female
     Dosage: 40.00000 MG, QD, FIRST CYCLE OF CHEMOTHERAPY
     Route: 041
     Dates: start: 20250425, end: 20250425
  4. SODIUM CHLORIDE [Suspect]
     Active Substance: SODIUM CHLORIDE
     Indication: Medication dilution
     Dosage: 250.0000 ML, QD, FIRST CYCLE OF CHEMOTHERAPY
     Route: 041
     Dates: start: 20250425, end: 20250425

REACTIONS (3)
  - Myelosuppression [Recovering/Resolving]
  - White blood cell count decreased [Recovering/Resolving]
  - Neutrophil count decreased [Recovering/Resolving]

NARRATIVE: CASE EVENT DATE: 20250515
